FAERS Safety Report 15759464 (Version 1)
Quarter: 2018Q4

REPORT INFORMATION
  Report Type: Spontaneous
  Country: JP (occurrence: JP)
  Receive Date: 20181226
  Receipt Date: 20181226
  Transmission Date: 20190205
  Serious: Yes (Other)
  Sender: FDA-Public Use
  Company Number: JP-SUN PHARMACEUTICAL INDUSTRIES LTD-2018RR-194548

PATIENT
  Age: 54 Year
  Sex: Male

DRUGS (2)
  1. CARBOPLATIN. [Suspect]
     Active Substance: CARBOPLATIN
     Indication: SQUAMOUS CELL CARCINOMA
     Dosage: AUC4 (GFR=0 FOR 100 MG) FOR THE 1ST COURSE, AUC 5 FOR THE 2ND COURSE, AND AUC 6 (3RD TO 6TH COURSES)
     Route: 065
  2. PACLITAXEL. [Suspect]
     Active Substance: PACLITAXEL
     Indication: SQUAMOUS CELL CARCINOMA
     Dosage: 200 MILLIGRAM/SQ. METER
     Route: 065

REACTIONS (5)
  - Neutrophil count decreased [Unknown]
  - Neuropathy peripheral [Unknown]
  - Drug effect incomplete [Unknown]
  - Eating disorder [Unknown]
  - Bone marrow failure [Unknown]
